FAERS Safety Report 15344778 (Version 1)
Quarter: 2018Q3

REPORT INFORMATION
  Report Type: Spontaneous
  Country: FR (occurrence: FR)
  Receive Date: 20180903
  Receipt Date: 20180903
  Transmission Date: 20181010
  Serious: Yes (Other)
  Sender: FDA-Public Use
  Company Number: FR-MERCK KGAA-2054570

PATIENT
  Age: 51 Year
  Sex: Female
  Weight: 66 kg

DRUGS (2)
  1. NOVOTHYROX [Suspect]
     Active Substance: LEVOTHYROXINE SODIUM
     Indication: POST PROCEDURAL HYPOTHYROIDISM
     Dates: start: 2017, end: 2018
  2. LEVOTHYROX 75 NF [Suspect]
     Active Substance: LEVOTHYROXINE SODIUM
     Dates: start: 2017, end: 2018

REACTIONS (28)
  - Fatigue [Recovered/Resolved]
  - Thyroid function test abnormal [None]
  - Hypocalcaemia [None]
  - Joint injury [None]
  - Hypertension [None]
  - Malaise [None]
  - Irritability [None]
  - Face injury [None]
  - Feeling cold [Not Recovered/Not Resolved]
  - Decreased appetite [Not Recovered/Not Resolved]
  - Insomnia [Not Recovered/Not Resolved]
  - Loss of consciousness [None]
  - Arthralgia [None]
  - Head injury [None]
  - Social avoidant behaviour [Recovered/Resolved]
  - Drug intolerance [None]
  - Chills [None]
  - Fall [None]
  - Haematoma [None]
  - Vomiting [None]
  - Diarrhoea [None]
  - General physical health deterioration [None]
  - Contusion [None]
  - Alopecia [Not Recovered/Not Resolved]
  - Pain [None]
  - Depression [None]
  - Crying [None]
  - Feeling hot [None]

NARRATIVE: CASE EVENT DATE: 2017
